FAERS Safety Report 9391695 (Version 3)
Quarter: 2014Q1

REPORT INFORMATION
  Report Type: Spontaneous
  Country: US (occurrence: US)
  Receive Date: 20130709
  Receipt Date: 20140107
  Transmission Date: 20141002
  Serious: Yes (Hospitalization)
  Sender: FDA-Public Use
  Company Number: US-GLAXOSMITHKLINE-A1031775A

PATIENT
  Age: 55 Year
  Sex: Female

DRUGS (2)
  1. AVANDIA [Suspect]
     Indication: DIABETES MELLITUS
     Route: 048
     Dates: start: 200104, end: 200504
  2. AVANDAMET [Suspect]
     Indication: DIABETES MELLITUS
     Route: 048
     Dates: start: 200402, end: 200412

REACTIONS (5)
  - Acute coronary syndrome [Unknown]
  - Myocardial infarction [Unknown]
  - Angina pectoris [Unknown]
  - Coronary artery reocclusion [Unknown]
  - Coronary artery disease [Unknown]
